FAERS Safety Report 4416169-9 (Version None)
Quarter: 2004Q2

REPORT INFORMATION
  Report Type: 
  Country: None (occurrence: None)
  Receive Date: 20040623
  Receipt Date: 20040430
  Transmission Date: 20050107
  Serious: No
  Sender: FDA-Public Use
  Company Number: WAES 0405USA00035

PATIENT
  Age: 49 Year
  Sex: Male

DRUGS (20)
  1. INVANZ [Suspect]
     Indication: WOUND INFECTION
     Dosage: 1 GM/DAILY/IV
     Route: 042
     Dates: start: 20040423, end: 20040428
  2. INVANZ [Suspect]
     Indication: WOUND INFECTION
     Dosage: 1 GM/DAILY/IV
     Route: 042
     Dates: start: 20040430, end: 20040501
  3. ATIVAN [Concomitant]
  4. ATROVENT [Concomitant]
  5. ACETAMINOPHEN [Concomitant]
  6. CYANOCOBALAMIN [Concomitant]
  7. DICYCLOMINE HYDROCHLORIDE [Concomitant]
  8. DOCUSATE SODIUM [Concomitant]
  9. FLUCONAZOLE [Concomitant]
  10. FLUNISOLIDE [Concomitant]
  11. FOLIC ACID [Concomitant]
  12. FORMOTEROL FUMARATE [Concomitant]
  13. MORPHINE SULFATE [Concomitant]
  14. OMEPRAZOLE [Concomitant]
  15. PYRIDOXINE [Concomitant]
  16. SENNA [Concomitant]
  17. SIMETHICONE [Concomitant]
  18. TRAMADOL HYDROCHLORIDE [Concomitant]
  19. TRAZODONE HCL [Concomitant]
  20. MULTIVITAMIN [Concomitant]

REACTIONS (2)
  - CHEST PAIN [None]
  - TACHYCARDIA [None]
